FAERS Safety Report 12931285 (Version 2)
Quarter: 2017Q1

REPORT INFORMATION
  Report Type: Spontaneous
  Country: US (occurrence: US)
  Receive Date: 20161110
  Receipt Date: 20170111
  Transmission Date: 20170428
  Serious: No
  Sender: FDA-Public Use
  Company Number: US-JAZZ-2016-US-018276

PATIENT
  Sex: Female

DRUGS (30)
  1. XYREM [Suspect]
     Active Substance: SODIUM OXYBATE
     Indication: NARCOLEPSY
     Dosage: 2.25 G, BID
     Route: 048
     Dates: start: 201305, end: 201306
  2. LATUDA [Concomitant]
     Active Substance: LURASIDONE HYDROCHLORIDE
  3. DEXTROAMPHETAMINE                  /00016601/ [Concomitant]
     Active Substance: DEXTROAMPHETAMINE
  4. BUSPIRONE HCL [Concomitant]
     Active Substance: BUSPIRONE HYDROCHLORIDE
  5. RELPAX [Concomitant]
     Active Substance: ELETRIPTAN HYDROBROMIDE
  6. LEVOTHYROXINE. [Suspect]
     Active Substance: LEVOTHYROXINE
     Indication: PRODUCT USED FOR UNKNOWN INDICATION
  7. BACLOFEN. [Concomitant]
     Active Substance: BACLOFEN
  8. PROMETHAZINE [Concomitant]
     Active Substance: PROMETHAZINE\PROMETHAZINE HYDROCHLORIDE
  9. LOESTRIN NOS [Concomitant]
     Active Substance: ETHINYL ESTRADIOL\NORETHINDRONE ACETATE
  10. XYREM [Suspect]
     Active Substance: SODIUM OXYBATE
     Dosage: 4.5 G, BID
     Route: 048
     Dates: start: 201307
  11. XYREM [Suspect]
     Active Substance: SODIUM OXYBATE
     Dosage: 4 G, BID
     Route: 048
  12. LAMOTRIGINE. [Concomitant]
     Active Substance: LAMOTRIGINE
  13. ADDERALL [Concomitant]
     Active Substance: AMPHETAMINE ASPARTATE\AMPHETAMINE SULFATE\DEXTROAMPHETAMINE SACCHARATE\DEXTROAMPHETAMINE SULFATE
  14. XYREM [Suspect]
     Active Substance: SODIUM OXYBATE
     Indication: CATAPLEXY
     Dosage: 3 G, FIRST DOSE
     Route: 048
     Dates: start: 201306, end: 201307
  15. PRAZOSIN [Concomitant]
     Active Substance: PRAZOSIN
  16. ALPRAZOLAM. [Concomitant]
     Active Substance: ALPRAZOLAM
  17. ZYRTEC [Concomitant]
     Active Substance: CETIRIZINE HYDROCHLORIDE
  18. HYDROXYZINE HCL [Concomitant]
     Active Substance: HYDROXYZINE HYDROCHLORIDE
  19. PARAGARD T 380A [Concomitant]
     Active Substance: COPPER
  20. XYREM [Suspect]
     Active Substance: SODIUM OXYBATE
     Dosage: 2.25 G, BID
     Route: 048
     Dates: start: 201609, end: 2016
  21. GABAPENTIN. [Concomitant]
     Active Substance: GABAPENTIN
  22. MODAFINIL. [Concomitant]
     Active Substance: MODAFINIL
  23. AMITRIPTYLINE HCL [Concomitant]
     Active Substance: AMITRIPTYLINE
  24. VALIUM [Concomitant]
     Active Substance: DIAZEPAM
  25. XYREM [Suspect]
     Active Substance: SODIUM OXYBATE
     Dosage: 2.5 G, SECOND DOSE
     Route: 048
     Dates: start: 201306, end: 201307
  26. PROPRANOLOL [Concomitant]
     Active Substance: PROPRANOLOL HYDROCHLORIDE
  27. STRATTERA [Concomitant]
     Active Substance: ATOMOXETINE HYDROCHLORIDE
  28. SEROQUEL [Concomitant]
     Active Substance: QUETIAPINE FUMARATE
  29. NORCO [Concomitant]
     Active Substance: ACETAMINOPHEN\HYDROCODONE BITARTRATE
  30. ZOFRAN [Concomitant]
     Active Substance: ONDANSETRON HYDROCHLORIDE

REACTIONS (6)
  - Thyroid disorder [Recovered/Resolved]
  - Tremor [Not Recovered/Not Resolved]
  - Alopecia [Unknown]
  - Malaise [Unknown]
  - Dysphagia [Unknown]
  - Pre-existing condition improved [Unknown]
